FAERS Safety Report 18023417 (Version 5)
Quarter: 2021Q1

REPORT INFORMATION
  Report Type: Report from Study
  Country: JP (occurrence: JP)
  Receive Date: 20200714
  Receipt Date: 20210114
  Transmission Date: 20210419
  Serious: Yes (Hospitalization)
  Sender: FDA-Public Use
  Company Number: JP-JNJFOC-20200707635

PATIENT
  Age: 74 Year
  Sex: Male
  Weight: 64.4 kg

DRUGS (11)
  1. PREDNSIONE [Suspect]
     Active Substance: PREDNISONE
     Route: 048
     Dates: start: 20200710
  2. APALUTAMIDE [Suspect]
     Active Substance: APALUTAMIDE
     Route: 048
     Dates: start: 20200710
  3. PREDNSIONE [Suspect]
     Active Substance: PREDNISONE
     Route: 048
     Dates: start: 20200617, end: 20200702
  4. ABIRATERONE ACETATE. [Suspect]
     Active Substance: ABIRATERONE ACETATE
     Indication: PROSTATE CANCER METASTATIC
     Route: 048
     Dates: start: 20160824, end: 20200702
  5. PREDNSIONE [Suspect]
     Active Substance: PREDNISONE
     Indication: PROSTATE CANCER METASTATIC
     Route: 048
     Dates: start: 20160824, end: 20200616
  6. PREDNSIONE [Suspect]
     Active Substance: PREDNISONE
     Route: 048
     Dates: start: 20200705, end: 20200709
  7. LOXOPROFEN [Concomitant]
     Active Substance: LOXOPROFEN
     Indication: INTERVERTEBRAL DISC PROTRUSION
     Dates: start: 20170628
  8. ABIRATERONE ACETATE. [Suspect]
     Active Substance: ABIRATERONE ACETATE
     Route: 048
     Dates: start: 20200710
  9. APALUTAMIDE [Suspect]
     Active Substance: APALUTAMIDE
     Indication: PROSTATE CANCER METASTATIC
     Route: 048
     Dates: start: 20160824, end: 20200702
  10. SILODOSIN. [Concomitant]
     Active Substance: SILODOSIN
     Indication: DYSURIA
     Route: 048
     Dates: start: 20131101, end: 20200702
  11. SILODOSIN. [Concomitant]
     Active Substance: SILODOSIN
     Route: 048
     Dates: start: 20200706

REACTIONS (2)
  - Aortic valve incompetence [Recovered/Resolved]
  - Aortic aneurysm [Recovered/Resolved]

NARRATIVE: CASE EVENT DATE: 20200702
